FAERS Safety Report 13337945 (Version 4)
Quarter: 2018Q3

REPORT INFORMATION
  Report Type: Spontaneous
  Country: US (occurrence: US)
  Receive Date: 20170315
  Receipt Date: 20180924
  Transmission Date: 20181010
  Serious: No
  Sender: FDA-Public Use
  Company Number: US-PFIZER INC-2016535486

PATIENT
  Age: 58 Year
  Sex: Female

DRUGS (8)
  1. GENOTROPIN [Suspect]
     Active Substance: SOMATROPIN
     Indication: DWARFISM
     Dosage: 0.4 MG, DAILY
     Route: 058
     Dates: start: 20161012, end: 201704
  2. BIOTIN [Concomitant]
     Active Substance: BIOTIN
     Dosage: 5 MG, 1X/DAY
     Route: 048
  3. ERGOCALCIFEROL. [Concomitant]
     Active Substance: ERGOCALCIFEROL
     Dosage: 50000 IU, WEEKLY
     Route: 048
  4. GENOTROPIN [Suspect]
     Active Substance: SOMATROPIN
     Indication: HYPOPITUITARISM
     Dosage: 0.6 MG, DAILY
     Dates: start: 201710
  5. LEVOFLOXACIN. [Concomitant]
     Active Substance: LEVOFLOXACIN
     Indication: CYSTITIS
     Dosage: 250 MG, 1X/DAY, (5 DAYS)
     Route: 048
  6. SYNTHROID [Concomitant]
     Active Substance: LEVOTHYROXINE SODIUM
     Indication: HYPOTHYROIDISM
     Dosage: 100 UG, DAILY, (EMPTY STOMACH IN THE MORNING)
     Route: 048
  7. GENOTROPIN [Suspect]
     Active Substance: SOMATROPIN
     Indication: GROWTH HORMONE DEFICIENCY
     Dosage: 0.8 MG, UNK
     Dates: start: 201804
  8. CYANOCOBALAMIN. [Concomitant]
     Active Substance: CYANOCOBALAMIN
     Dosage: 1000 MCG/ML SOLUTION 1 ML INJECTION WEEKLY

REACTIONS (21)
  - Drug effect incomplete [Unknown]
  - Pain [Not Recovered/Not Resolved]
  - Bone pain [Unknown]
  - Fluid retention [Unknown]
  - Asthenia [Unknown]
  - Wrong technique in product usage process [Unknown]
  - Skin tightness [Unknown]
  - Joint swelling [Unknown]
  - Drug dose omission [Unknown]
  - Incorrect dose administered [Unknown]
  - Pruritus generalised [Unknown]
  - Peripheral swelling [Recovered/Resolved]
  - Insulin-like growth factor decreased [Unknown]
  - Thyroid function test abnormal [Unknown]
  - Weight decreased [Unknown]
  - Fatigue [Not Recovered/Not Resolved]
  - Blood thyroid stimulating hormone decreased [Unknown]
  - Feeling abnormal [Unknown]
  - Gastritis [Unknown]
  - Blood creatinine decreased [Unknown]
  - Arthralgia [Not Recovered/Not Resolved]

NARRATIVE: CASE EVENT DATE: 201701
